FAERS Safety Report 24642756 (Version 1)
Quarter: 2024Q4

REPORT INFORMATION
  Report Type: Spontaneous
  Country: US (occurrence: None)
  Receive Date: 20241119
  Receipt Date: 20241119
  Transmission Date: 20250115
  Serious: Yes (unspecified)
  Sender: Public
  Company Number: None

PATIENT
  Age: 47 Year
  Sex: Male

DRUGS (1)
  1. HERBALS\TETRAHYDROCANNABINOL UNSPECIFIED [Suspect]
     Active Substance: HERBALS\TETRAHYDROCANNABINOL UNSPECIFIED

REACTIONS (7)
  - Overdose [None]
  - Dysarthria [None]
  - Lethargy [None]
  - Drug abuse [None]
  - Alcohol use [None]
  - Glassy eyes [None]
  - Ocular hyperaemia [None]

NARRATIVE: CASE EVENT DATE: 20240915
